FAERS Safety Report 8169878-2 (Version None)
Quarter: 2012Q1

REPORT INFORMATION
  Report Type: 
  Country: None (occurrence: None)
  Receive Date: 20120228
  Receipt Date: 20120217
  Transmission Date: 20120608
  Serious: Yes (Hospitalization, Other)
  Sender: FDA-Public Use
  Company Number: CA-JNJFOC-20120208514

PATIENT
  Sex: Male
  Weight: 60 kg

DRUGS (16)
  1. NOVOPREDNISONE [Concomitant]
     Indication: PREMEDICATION
     Dosage: FILL DATE STATUS: 16-AUG-2011
     Route: 065
     Dates: start: 20100930
  2. CESAMET [Concomitant]
     Dosage: FILL DATE STATUS: 18-AUG-2011 (PART FILL)
     Route: 065
     Dates: start: 20110502
  3. TRYPHTOPHAN [Concomitant]
     Dosage: FILL DATE STATUS: 06-JUL-2011 2 TABLETS
     Route: 065
     Dates: start: 20110502
  4. SATIVEX [Concomitant]
     Dosage: FILL DATE STATUS: 01-MAY-2011 (PART FILL) 1 TO 5 SPRAYS PER DAY
     Route: 065
     Dates: start: 20100416
  5. CYMBALTA [Concomitant]
     Route: 065
     Dates: start: 20110819
  6. AZATHIOPRINE [Concomitant]
     Dosage: 3 TABS AT BED TIME FILL DATE STATUS: 08-AUG-2011
     Route: 065
     Dates: start: 20110829
  7. TESTOSTERONE [Concomitant]
     Dosage: FILL DATE STATUS: 02-APR-2011 (UNFILLES) 100 MG/ML  (1ML)
     Route: 065
     Dates: start: 20110402
  8. RATIO-CODEINE [Concomitant]
     Dosage: FILL DATE STATUS: 30-JUN-2011 (PART FILL)  UPTO 9 TABLETS PER DAY
     Route: 065
     Dates: start: 20100703
  9. PMS-DIPHENHYDRAMINE [Concomitant]
     Indication: PREMEDICATION
     Dosage: FILL DATE STATUS: 16-AUG-2011
     Route: 065
     Dates: start: 20100930
  10. GRAVOL TAB [Concomitant]
     Dosage: FILL DATE STATUS: 08-AUG-2011
     Route: 065
     Dates: start: 20110808
  11. SUPEUDOL [Concomitant]
     Dosage: FILL DATE STATUS: 20-JUL-2011 PART FILL
     Route: 065
     Dates: start: 20110628
  12. NALOXONE [Concomitant]
     Dosage: FILL DATE STATUS: 19-JUN-2011 (PART FILL) 10MG / 5MG
     Route: 065
     Dates: start: 20110502
  13. PANTOPRAZOLE [Concomitant]
     Dosage: FILL DATE STATUS: 10-MAY-2011
     Route: 065
     Dates: start: 20110502
  14. REMICADE [Suspect]
     Indication: CROHN'S DISEASE
     Route: 042
     Dates: start: 20101004
  15. OMEPRAZOLE [Concomitant]
     Dosage: FILL DATE STATUS: 08-AUG-2011
     Route: 065
     Dates: start: 20110627
  16. PMS-CLONAZEPAM [Concomitant]
     Dosage: FILL DATE STATUS: 07-JUL-2011 2 TO 3 TABLETS AS NEEDED
     Route: 065
     Dates: start: 20110627

REACTIONS (5)
  - NAUSEA [None]
  - ABDOMINAL PAIN [None]
  - VOMITING [None]
  - CONSTIPATION [None]
  - PSORIASIS [None]
